FAERS Safety Report 7445848-4 (Version None)
Quarter: 2011Q2

REPORT INFORMATION
  Report Type: 
  Country: None (occurrence: None)
  Receive Date: 20110429
  Receipt Date: 20110425
  Transmission Date: 20111010
  Serious: Yes (Other)
  Sender: FDA-Public Use
  Company Number: US-PFIZER INC-2011089244

PATIENT
  Sex: Male
  Weight: 92.971 kg

DRUGS (6)
  1. OXYCODONE [Concomitant]
     Indication: PAIN
     Dosage: UNK
  2. PERCOCET [Concomitant]
     Indication: PAIN
     Dosage: UNK
  3. NEURONTIN [Suspect]
     Indication: BACK INJURY
     Dosage: UNK
  4. TRAZODONE [Concomitant]
     Indication: MUSCLE SPASMS
     Dosage: UNK
  5. LYRICA [Suspect]
     Indication: PAIN
     Dosage: 50 MG, DAILY
     Route: 048
     Dates: start: 20110406
  6. LYRICA [Suspect]
     Indication: NERVE INJURY

REACTIONS (3)
  - VISION BLURRED [None]
  - OEDEMA PERIPHERAL [None]
  - POLLAKIURIA [None]
